FAERS Safety Report 8842489 (Version 1)
Quarter: 2012Q4

REPORT INFORMATION
  Report Type: 
  Country: US (occurrence: US)
  Receive Date: 20121016
  Receipt Date: 20121016
  Transmission Date: 20130627
  Serious: Yes (Death)
  Sender: FDA-Public Use
  Company Number: US-ROCHE-1136968

PATIENT
  Sex: Female

DRUGS (6)
  1. XELODA [Suspect]
     Indication: ANAL CANCER
     Route: 050
  2. POTASSIUM CHLORIDE [Concomitant]
  3. ZANTAC [Concomitant]
  4. LIDOCAINE [Concomitant]
  5. ATENOL [Concomitant]
  6. SPIRONOLACTONE [Concomitant]

REACTIONS (1)
  - Death [Fatal]
